FAERS Safety Report 10908687 (Version 1)
Quarter: 2015Q1

REPORT INFORMATION
  Report Type: Spontaneous
  Country: GB (occurrence: None)
  Receive Date: 20150309
  Receipt Date: 20150309
  Transmission Date: 20150721
  Serious: Yes (Other)
  Sender: FDA-Public Use
  Company Number: SP09116

PATIENT
  Age: 59 Year
  Sex: Female
  Weight: 59.4 kg

DRUGS (19)
  1. MACROGOL [Concomitant]
     Active Substance: POLYETHYLENE GLYCOLS
  2. CYCLIZINE [Concomitant]
     Active Substance: CYCLIZINE
  3. LIDOCAINE. [Concomitant]
     Active Substance: LIDOCAINE
  4. ORAMORPH SR SUSTAINED RELEASE [Concomitant]
     Active Substance: MORPHINE SULFATE
  5. SODIUM PHOSPHATE [Concomitant]
     Active Substance: SODIUM PHOSPHATE
  6. CALCICHEW D3 [Concomitant]
     Active Substance: CALCIUM\CHOLECALCIFEROL
  7. CO-DANTHRAMER [Concomitant]
  8. DOCUSATE [Concomitant]
     Active Substance: DOCUSATE
  9. RANITIDINE [Concomitant]
     Active Substance: RANITIDINE\RANITIDINE HYDROCHLORIDE
  10. RELISTOR [Suspect]
     Active Substance: METHYLNALTREXONE BROMIDE
     Indication: CONSTIPATION
     Route: 058
     Dates: start: 20150210, end: 20150210
  11. OXYCODONE [Concomitant]
     Active Substance: OXYCODONE
  12. NAPROXEN. [Concomitant]
     Active Substance: NAPROXEN
  13. AMLODIPINE [Concomitant]
     Active Substance: AMLODIPINE BESYLATE
  14. METOCLOPRAMIDE. [Concomitant]
     Active Substance: METOCLOPRAMIDE
  15. PARACETAMOL [Concomitant]
     Active Substance: ACETAMINOPHEN
  16. ARACHIS OIL [Concomitant]
  17. DENOSUMAB [Concomitant]
     Active Substance: DENOSUMAB
  18. FENTANYL. [Concomitant]
     Active Substance: FENTANYL
  19. FULVESTRANT [Concomitant]
     Active Substance: FULVESTRANT

REACTIONS (2)
  - Dystonia [None]
  - Seizure [None]

NARRATIVE: CASE EVENT DATE: 20150210
